FAERS Safety Report 6530717-4 (Version None)
Quarter: 2010Q1

REPORT INFORMATION
  Report Type: 
  Country: None (occurrence: None)
  Receive Date: 20100108
  Receipt Date: 20090127
  Transmission Date: 20100710
  Serious: No
  Sender: FDA-Public Use
  Company Number: A0760180A

PATIENT
  Age: 57 Year
  Sex: Female

DRUGS (4)
  1. LOVAZA [Suspect]
     Indication: BLOOD CHOLESTEROL INCREASED
     Dosage: 2CAP TWICE PER DAY
     Route: 048
     Dates: start: 20081003, end: 20081009
  2. LISINOPRIL [Concomitant]
  3. ATENOLOL [Concomitant]
  4. NIASPAN [Concomitant]

REACTIONS (3)
  - HYPERSENSITIVITY [None]
  - RASH [None]
  - RASH PRURITIC [None]
